FAERS Safety Report 6789684-0 (Version None)
Quarter: 2010Q2

REPORT INFORMATION
  Report Type: 
  Country: None (occurrence: None)
  Receive Date: 20100624
  Receipt Date: 20100612
  Transmission Date: 20101027
  Serious: Yes (Other)
  Sender: FDA-Public Use
  Company Number: US-RB-012082-10

PATIENT
  Age: 15 Year
  Sex: Male

DRUGS (1)
  1. DELSYM ADULT GRAPE 3 OZ [Suspect]
     Dosage: INGESTED  3OZ OF THE PRODUCT
     Route: 048
     Dates: start: 20100612

REACTIONS (2)
  - NO ADVERSE EVENT [None]
  - OVERDOSE [None]
